FAERS Safety Report 14102997 (Version 2)
Quarter: 2017Q4

REPORT INFORMATION
  Report Type: Spontaneous
  Country: US (occurrence: US)
  Receive Date: 20171018
  Receipt Date: 20171028
  Transmission Date: 20180321
  Serious: No
  Sender: FDA-Public Use
  Company Number: PHEH2017US032750

PATIENT
  Sex: Male

DRUGS (2)
  1. LENVIMA [Suspect]
     Active Substance: LENVATINIB
     Indication: RENAL CELL CARCINOMA
     Dosage: 18 MG, QD
     Route: 048
     Dates: start: 20170920, end: 20171006
  2. AFINITOR [Suspect]
     Active Substance: EVEROLIMUS
     Indication: RENAL CELL CARCINOMA
     Dosage: 5 MG, QD (ONCE DAILY)
     Route: 048
     Dates: end: 20171006

REACTIONS (7)
  - Blood pressure fluctuation [Recovering/Resolving]
  - Heart rate increased [Recovering/Resolving]
  - Nasopharyngitis [Recovering/Resolving]
  - Dysstasia [Recovering/Resolving]
  - Pyrexia [Recovering/Resolving]
  - Blood sodium decreased [Recovering/Resolving]
  - Disorientation [Recovering/Resolving]
